FAERS Safety Report 24361124 (Version 1)
Quarter: 2024Q3

REPORT INFORMATION
  Report Type: Spontaneous
  Country: CN (occurrence: CN)
  Receive Date: 20240925
  Receipt Date: 20240925
  Transmission Date: 20241017
  Serious: Yes (Other)
  Sender: MERCK
  Company Number: CN-009507513-2409CHN008490

PATIENT
  Age: 65 Year
  Sex: Male

DRUGS (5)
  1. TEMODAL [Suspect]
     Active Substance: TEMOZOLOMIDE
     Indication: Glioblastoma
     Dosage: 75MG/M2, QD, D1-42 DAYS
     Route: 048
     Dates: start: 20240105
  2. TEMODAL [Suspect]
     Active Substance: TEMOZOLOMIDE
     Dosage: 150MG/M2, QD, FIRST CYCLE OF MAINTENANCE TREATMENT FOR 5 DAYS FOLLOWED BY A 23-DAY OFF
     Route: 048
     Dates: start: 20240315, end: 20240319
  3. TEMODAL [Suspect]
     Active Substance: TEMOZOLOMIDE
     Dosage: 200MG/M2 QD, CYCLE 2 OF MAINTENANCE TREATMENT FOR 5 DAYS FOLLOWED BY A 23-DAY OFF
     Route: 048
     Dates: start: 2024, end: 2024
  4. TEMODAL [Suspect]
     Active Substance: TEMOZOLOMIDE
     Dosage: 150MG/M2 QD FOR 5 DAYS, FOLLOWED BY 23 DAYS OFF, 28 DAYS/CYCLE
     Route: 048
     Dates: start: 20240812, end: 2024
  5. TEMODAL [Suspect]
     Active Substance: TEMOZOLOMIDE
     Dosage: 200MG/M2 QD, D1-5, 28 DAYS/CYCLE
     Route: 048
     Dates: start: 2024

REACTIONS (3)
  - Recurrent cancer [Not Recovered/Not Resolved]
  - Glioblastoma [Not Recovered/Not Resolved]
  - Subdural effusion [Unknown]

NARRATIVE: CASE EVENT DATE: 20240625
